FAERS Safety Report 4291505-5 (Version None)
Quarter: 2004Q1

REPORT INFORMATION
  Report Type: 
  Country: None (occurrence: None)
  Receive Date: 20040126
  Receipt Date: 20030909
  Transmission Date: 20041129
  Serious: No
  Sender: FDA-Public Use
  Company Number: USA030946650

PATIENT
  Age: 78 Year
  Sex: Female
  Weight: 60 kg

DRUGS (1)
  1. FORTEO [Suspect]
     Indication: OSTEOPOROSIS
     Dosage: 20 UG/DAY
     Dates: start: 20030401

REACTIONS (8)
  - ARTHRALGIA [None]
  - BONE PAIN [None]
  - DIZZINESS [None]
  - HYPOAESTHESIA [None]
  - MUSCLE CRAMP [None]
  - OEDEMA PERIPHERAL [None]
  - SLEEP DISORDER [None]
  - VEIN PAIN [None]
